FAERS Safety Report 8890342 (Version 2)
Quarter: 2013Q1

REPORT INFORMATION
  Report Type: Report from Study
  Country: US (occurrence: US)
  Receive Date: 20121107
  Receipt Date: 20130104
  Transmission Date: 20140127
  Serious: Yes (Other)
  Sender: FDA-Public Use
  Company Number: US-BAYER-2012-110136

PATIENT
  Age: 47 Year
  Sex: Female
  Weight: 89.34 kg

DRUGS (7)
  1. BETASERON [Suspect]
     Indication: RELAPSING-REMITTING MULTIPLE SCLEROSIS
     Dosage: 2 MIU, QOD
     Route: 058
     Dates: start: 20121010
  2. BETASERON [Suspect]
     Indication: RELAPSING-REMITTING MULTIPLE SCLEROSIS
     Dosage: 4 MIU, QOD
     Route: 058
     Dates: start: 20121010
  3. BETASERON [Suspect]
     Indication: RELAPSING-REMITTING MULTIPLE SCLEROSIS
     Dosage: 8 MIU, QOD
     Route: 058
     Dates: end: 20121218
  4. NEURONTIN [Concomitant]
     Dosage: 600 MG, UNK
  5. CELEXA [Concomitant]
     Dosage: 40 MG, UNK
  6. VYVANSE [Concomitant]
     Dosage: 50 MG, UNK
  7. KLONOPIN [Concomitant]
     Dosage: 1 MG, UNK

REACTIONS (11)
  - Headache [Not Recovered/Not Resolved]
  - Pain [Not Recovered/Not Resolved]
  - Fatigue [Recovered/Resolved]
  - Aphagia [Not Recovered/Not Resolved]
  - Pain [Not Recovered/Not Resolved]
  - Psychogenic seizure [Recovering/Resolving]
  - Fatigue [Recovering/Resolving]
  - Pain [Recovering/Resolving]
  - Migraine [Recovering/Resolving]
  - Nausea [Recovering/Resolving]
  - Convulsion [None]
